FAERS Safety Report 8317283 (Version 4)
Quarter: 2012Q4

REPORT INFORMATION
  Report Type: Report from Study
  Country: CA (occurrence: CA)
  Receive Date: 20111230
  Receipt Date: 20121206
  Transmission Date: 20130627
  Serious: Yes (Death, Hospitalization)
  Sender: FDA-Public Use
  Company Number: CA-GENZYME-THYM-1003043

PATIENT
  Age: 64 Year
  Sex: Female
  Weight: 98 kg

DRUGS (6)
  1. THYMOGLOBULINE [Suspect]
     Indication: PROPHYLAXIS AGAINST GRAFT VERSUS HOST DISEASE
     Dosage: .5 mg/kg, UNK
     Route: 042
     Dates: start: 20110828, end: 20110828
  2. THYMOGLOBULINE [Suspect]
     Dosage: 2 mg/kg, UNK
     Route: 042
     Dates: start: 20110829, end: 20110829
  3. THYMOGLOBULINE [Suspect]
     Dosage: 2 mg/kg, UNK
     Route: 042
     Dates: start: 20110901, end: 20110901
  4. CAMPATH [Suspect]
     Indication: GRAFT VERSUS HOST DISEASE
     Dosage: UNK
     Route: 065
  5. CYCLOSPORINE [Concomitant]
     Indication: PRODUCT USED FOR UNKNOWN INDICATION
     Dosage: UNK
     Route: 065
  6. GANCICLOVIR [Concomitant]
     Indication: PRODUCT USED FOR UNKNOWN INDICATION
     Dosage: UNK
     Route: 065

REACTIONS (3)
  - Graft versus host disease in intestine [Fatal]
  - Clostridial infection [Recovered/Resolved]
  - Therapeutic response decreased [Unknown]
